FAERS Safety Report 12313014 (Version 1)
Quarter: 2016Q2

REPORT INFORMATION
  Report Type: Spontaneous
  Country: CA (occurrence: CA)
  Receive Date: 20160428
  Receipt Date: 20160428
  Transmission Date: 20160815
  Serious: Yes (Other)
  Sender: FDA-Public Use
  Company Number: CA-ROCHE-1748232

PATIENT

DRUGS (1)
  1. FUZEON [Suspect]
     Active Substance: ENFUVIRTIDE
     Indication: HIV INFECTION
     Route: 065

REACTIONS (7)
  - Pain [Not Recovered/Not Resolved]
  - Limb injury [Unknown]
  - Malabsorption from injection site [Unknown]
  - Erythema [Unknown]
  - Haemorrhage [Not Recovered/Not Resolved]
  - Peripheral swelling [Unknown]
  - Deformity [Not Recovered/Not Resolved]
